FAERS Safety Report 9991914 (Version 3)
Quarter: 2014Q1

REPORT INFORMATION
  Report Type: Report from Study
  Country: GB (occurrence: GB)
  Receive Date: 20140310
  Receipt Date: 20140324
  Transmission Date: 20141002
  Serious: Yes (Life-Threatening, Hospitalization)
  Sender: FDA-Public Use
  Company Number: GB-ONYX-2014-0464

PATIENT
  Age: 59 Year
  Sex: Male

DRUGS (4)
  1. CARFILZOMIB [Suspect]
     Indication: PLASMA CELL MYELOMA
     Route: 042
     Dates: start: 20140217, end: 20140228
  2. DEXAMETHASONE [Concomitant]
     Indication: PLASMA CELL MYELOMA
     Route: 048
     Dates: start: 20140217, end: 20140228
  3. LENALIDOMIDE [Concomitant]
     Indication: PLASMA CELL MYELOMA
     Route: 048
     Dates: start: 20140217, end: 20140228
  4. CYCLOPHOSPHAMIDE [Concomitant]
     Indication: PLASMA CELL MYELOMA
     Route: 048
     Dates: start: 20140217, end: 20140228

REACTIONS (5)
  - Disseminated intravascular coagulation [Recovering/Resolving]
  - Renal failure acute [Recovering/Resolving]
  - Pulmonary oedema [Recovering/Resolving]
  - Hyperviscosity syndrome [Recovering/Resolving]
  - Rash [Recovering/Resolving]
